FAERS Safety Report 21753533 (Version 1)
Quarter: 2022Q4

REPORT INFORMATION
  Report Type: Spontaneous
  Country: US (occurrence: US)
  Receive Date: 20221220
  Receipt Date: 20221220
  Transmission Date: 20230113
  Serious: Yes (Other)
  Sender: FDA-Public Use
  Company Number: US-TEVA-2022-US-2837346

PATIENT
  Age: 17 Year
  Sex: Female

DRUGS (1)
  1. TESTOSTERONE CYPIONATE [Suspect]
     Active Substance: TESTOSTERONE CYPIONATE
     Indication: Gender dysphoria
     Route: 065

REACTIONS (2)
  - Metaplasia [Unknown]
  - Prostatic disorder [Unknown]
